FAERS Safety Report 10700054 (Version 1)
Quarter: 2015Q1

REPORT INFORMATION
  Report Type: Spontaneous
  Country: US (occurrence: None)
  Receive Date: 20150107
  Receipt Date: 20150107
  Transmission Date: 20150721
  Serious: Yes (Life-Threatening)
  Sender: FDA-Public Use
  Company Number: FK201406524

PATIENT
  Age: 40 Year
  Sex: Female

DRUGS (2)
  1. HALOPERIDOL INJECTION (MANUFACTURER UNKNOWN) (HALOPERIDOL LACTATE) (HALOPERIDOL LACTATE) [Suspect]
     Active Substance: HALOPERIDOL LACTATE
     Route: 042
  2. IBOGAINE [Suspect]
     Active Substance: IBOGAINE
     Indication: DRUG DEPENDENCE
     Route: 048

REACTIONS (5)
  - Generalised tonic-clonic seizure [None]
  - Ventricular tachycardia [None]
  - Ventricular extrasystoles [None]
  - Torsade de pointes [None]
  - Cardiac arrest [None]
